FAERS Safety Report 7390966-2 (Version None)
Quarter: 2011Q2

REPORT INFORMATION
  Report Type: 
  Country: None (occurrence: None)
  Receive Date: 20110404
  Receipt Date: 20110329
  Transmission Date: 20111010
  Serious: No
  Sender: FDA-Public Use
  Company Number: US-PFIZER INC-2011032186

PATIENT
  Sex: Female

DRUGS (2)
  1. ADVIL PM [Suspect]
     Dosage: 1 DF, UNK
     Route: 048
  2. ADVIL PM [Suspect]
     Dosage: 2 DF, UNK
     Route: 048

REACTIONS (1)
  - TINNITUS [None]
